FAERS Safety Report 7406164-X (Version None)
Quarter: 2011Q2

REPORT INFORMATION
  Report Type: 
  Country: None (occurrence: None)
  Receive Date: 20110411
  Receipt Date: 20110406
  Transmission Date: 20111010
  Serious: Yes (Death, Hospitalization)
  Sender: FDA-Public Use
  Company Number: US-ASTRAZENECA-2011SE19446

PATIENT
  Age: 56 Year
  Sex: Female

DRUGS (6)
  1. PERCOCET [Concomitant]
  2. COREG [Concomitant]
  3. XANAX [Concomitant]
  4. LORTAB [Concomitant]
  5. SEROQUEL [Suspect]
     Indication: BIPOLAR DISORDER
     Route: 048
     Dates: end: 20100101
  6. COUMADIN [Concomitant]

REACTIONS (8)
  - HYPERTENSION [None]
  - URINE OUTPUT DECREASED [None]
  - CONVULSION [None]
  - FALL [None]
  - FEMUR FRACTURE [None]
  - DIABETES MELLITUS [None]
  - INCORRECT DOSE ADMINISTERED [None]
  - CEREBROVASCULAR ACCIDENT [None]
